FAERS Safety Report 15202642 (Version 1)
Quarter: 2018Q4

REPORT INFORMATION
  Report Type: Spontaneous
  Country: DE (occurrence: DE)
  Receive Date: 20180726
  Receipt Date: 20180726
  Transmission Date: 20190204
  Serious: Yes (Other)
  Sender: FDA-Public Use
  Company Number: DE-AUROBINDO-AUR-APL-2018-037796

PATIENT
  Age: 44 Year
  Sex: Female
  Weight: 58 kg

DRUGS (2)
  1. TRIAM /00012501/ [Suspect]
     Active Substance: TRIAMCINOLONE
     Indication: SPINAL PAIN
     Dosage: 0.5 DOSAGE FORM,HALBE AMPULLE(HALF AMPOULE)
     Route: 030
     Dates: start: 20180604
  2. LIDOCAINE SOLUTION FOR INJECTION [Suspect]
     Active Substance: LIDOCAINE
     Indication: SPINAL PAIN
     Dosage: LIDOCAIN (NOT KNOWN), TRIAM10: HALBE AMPULLE
     Route: 030
     Dates: start: 20180604

REACTIONS (9)
  - Asthenia [Recovered/Resolved]
  - Headache [Recovered/Resolved]
  - Loss of consciousness [Recovered/Resolved]
  - Vomiting [Recovered/Resolved]
  - Cardiovascular insufficiency [Recovered/Resolved]
  - Hyperhidrosis [Recovered/Resolved]
  - Dizziness [Recovered/Resolved]
  - Nausea [Recovered/Resolved]
  - Circulatory collapse [Recovered/Resolved]

NARRATIVE: CASE EVENT DATE: 20180604
